FAERS Safety Report 19425870 (Version 1)
Quarter: 2021Q2

REPORT INFORMATION
  Report Type: Report from Study
  Country: None (occurrence: CA)
  Receive Date: 20210617
  Receipt Date: 20210617
  Transmission Date: 20210717
  Serious: Yes (Hospitalization)
  Sender: FDA-Public Use
  Company Number: CA-ABBVIE-21K-028-3910414-00

PATIENT
  Sex: Male

DRUGS (1)
  1. LUPRON DEPOT [Suspect]
     Active Substance: LEUPROLIDE ACETATE
     Indication: PROSTATE CANCER
     Route: 030
     Dates: start: 20171016

REACTIONS (4)
  - Bladder ablation [Unknown]
  - Abscess [Unknown]
  - Cerebrovascular accident [Unknown]
  - Intestinal resection [Unknown]

NARRATIVE: CASE EVENT DATE: 2021
